FAERS Safety Report 5551668-8 (Version None)
Quarter: 2007Q4

REPORT INFORMATION
  Report Type: 
  Country: None (occurrence: None)
  Receive Date: 20071212
  Receipt Date: 20071203
  Transmission Date: 20080405
  Serious: Yes (Other)
  Sender: FDA-Public Use
  Company Number: DE-ROXANE LABORATORIES, INC-2007-DE-07097DE

PATIENT
  Sex: Female
  Weight: 54 kg

DRUGS (2)
  1. BUSCOPAN PLUS [Suspect]
     Route: 048
  2. NAPROXEN [Suspect]
     Route: 048

REACTIONS (5)
  - DRUG ABUSE [None]
  - NAUSEA [None]
  - OVERDOSE [None]
  - SUICIDE ATTEMPT [None]
  - VISION BLURRED [None]
